FAERS Safety Report 16581762 (Version 1)
Quarter: 2019Q3

REPORT INFORMATION
  Report Type: Spontaneous
  Country: US (occurrence: US)
  Receive Date: 20190716
  Receipt Date: 20190716
  Transmission Date: 20191004
  Serious: No
  Sender: FDA-Public Use
  Company Number: US-PERRIGO-18US007590

PATIENT
  Age: 59 Year
  Sex: Female
  Weight: 68.03 kg

DRUGS (2)
  1. MICONAZOLE 1 [Suspect]
     Active Substance: MICONAZOLE NITRATE
     Indication: VULVOVAGINAL MYCOTIC INFECTION
     Dosage: APPROXIMATELY 9 G, SINGLE
     Route: 067
     Dates: start: 20180724, end: 20180724
  2. KEPPRA [Concomitant]
     Active Substance: LEVETIRACETAM
     Indication: EPILEPSY
     Dosage: UNK
     Route: 048
     Dates: start: 2014

REACTIONS (1)
  - Incorrect route of product administration [Recovered/Resolved]

NARRATIVE: CASE EVENT DATE: 20180724
